FAERS Safety Report 5751227-8 (Version None)
Quarter: 2008Q2

REPORT INFORMATION
  Report Type: 
  Country: None (occurrence: None)
  Receive Date: 20080528
  Receipt Date: 20080505
  Transmission Date: 20081010
  Serious: No
  Sender: FDA-Public Use
  Company Number: US-BOEHRINGER INGELHEIM GMBH, GERMANY-2008-BP-07030BP

PATIENT
  Age: 56 Year
  Sex: Male

DRUGS (9)
  1. SPIRIVA [Suspect]
  2. BENICAR [Concomitant]
  3. PROTONIX [Concomitant]
  4. CRESTOR [Concomitant]
  5. PLAVIX [Concomitant]
  6. NIASPAN [Concomitant]
  7. ASPIRIN [Concomitant]
  8. MUCINEX [Concomitant]
  9. SYMBICORT [Concomitant]

REACTIONS (1)
  - RASH [None]
